FAERS Safety Report 4866635-7 (Version None)
Quarter: 2005Q4

REPORT INFORMATION
  Report Type: 
  Country: None (occurrence: None)
  Receive Date: 20051227
  Receipt Date: 20051213
  Transmission Date: 20060501
  Serious: Yes (Death)
  Sender: FDA-Public Use
  Company Number: CZ-JNJFOC-20051205001

PATIENT
  Sex: Female

DRUGS (4)
  1. DOXIL [Suspect]
     Indication: MULTIPLE MYELOMA
     Route: 042
  2. VELCADE [Concomitant]
     Indication: MULTIPLE MYELOMA
     Route: 042
  3. THALIDOMIDE [Concomitant]
     Indication: MULTIPLE MYELOMA
  4. DEXAMETHASONE [Concomitant]
     Indication: MULTIPLE MYELOMA

REACTIONS (3)
  - ARRHYTHMIA [None]
  - MULTIPLE MYELOMA [None]
  - NEUROPATHY [None]
